FAERS Safety Report 5015731-2 (Version None)
Quarter: 2006Q2

REPORT INFORMATION
  Report Type: 
  Country: None (occurrence: None)
  Receive Date: 20060526
  Receipt Date: 20060515
  Transmission Date: 20061013
  Serious: No
  Sender: FDA-Public Use
  Company Number: 224640

PATIENT
  Age: 54 Year
  Sex: Male
  Weight: 97.5 kg

DRUGS (7)
  1. NUTROPIN AQ [Suspect]
     Indication: HYPOPITUITARISM
     Dosage: 0.35, SUBCUTANEOUS
     Route: 058
     Dates: start: 20000911, end: 20050525
  2. CALCIUM/VITAMIN D (CALCIUM NOS, CHOLECALCIFEROL) [Concomitant]
  3. FISH OIL (FISH OIL) [Concomitant]
  4. FOSAMAX [Concomitant]
  5. PRAVACHOL [Concomitant]
  6. TRICOR [Concomitant]
  7. INTERFERON (INTERFERON) [Concomitant]

REACTIONS (1)
  - MALIGNANT MELANOMA [None]
